FAERS Safety Report 9351879 (Version 1)
Quarter: 2013Q2

REPORT INFORMATION
  Report Type: Spontaneous
  Country: FR (occurrence: FR)
  Receive Date: 20130617
  Receipt Date: 20130617
  Transmission Date: 20140414
  Serious: Yes (Death)
  Sender: FDA-Public Use
  Company Number: FR-TEVA-412855ISR

PATIENT
  Age: 71 Year
  Sex: Female

DRUGS (1)
  1. FUROSEMIDE TEVA [Suspect]
     Dosage: 40 MILLIMOL DAILY; SCORED TABLET
     Route: 048
     Dates: start: 20130506, end: 20130520

REACTIONS (2)
  - Myocardial infarction [Fatal]
  - Drug ineffective [Fatal]
